FAERS Safety Report 8429654-X (Version None)
Quarter: 2012Q2

REPORT INFORMATION
  Report Type: 
  Country: None (occurrence: None)
  Receive Date: 20120612
  Receipt Date: 20120530
  Transmission Date: 20120825
  Serious: Yes (Death, Hospitalization, Other)
  Sender: FDA-Public Use
  Company Number: FR-VERTEX PHARMACEUTICALS INC.-000000000000000576

PATIENT
  Sex: Male
  Weight: 50 kg

DRUGS (9)
  1. PEGASYS [Concomitant]
     Indication: HEPATITIS C
     Dosage: DOSAGE FORM: UNSPECIFIED
     Dates: start: 20111010, end: 20120502
  2. PEGASYS [Concomitant]
     Dates: start: 20110813, end: 20111010
  3. FOLIC ACID [Concomitant]
     Indication: ANAEMIA
     Dates: start: 20111208
  4. REBETOL [Concomitant]
     Dates: start: 20110812, end: 20111117
  5. REYATAZ [Concomitant]
     Indication: HIV INFECTION
     Dates: start: 20120223
  6. TRUVADA [Concomitant]
     Indication: HIV INFECTION
     Dates: start: 20111103
  7. VX-950 [Suspect]
     Indication: HEPATITIS C
     Dosage: DOSAGE FORM: TABLET
     Route: 048
     Dates: start: 20110909, end: 20111201
  8. REBETOL [Concomitant]
     Indication: HEPATITIS C
     Dosage: DOSAGE FORM: UNSPECIFIED
     Dates: start: 20111117, end: 20120502
  9. ALLOPURINOL [Concomitant]
     Indication: GOUT
     Dates: start: 20080613

REACTIONS (2)
  - CEREBRAL HAEMORRHAGE [None]
  - THROMBOCYTOPENIA [None]
